FAERS Safety Report 6917825-0 (Version None)
Quarter: 2010Q3

REPORT INFORMATION
  Report Type: 
  Country: None (occurrence: None)
  Receive Date: 20100810
  Receipt Date: 20090401
  Transmission Date: 20110219
  Serious: No
  Sender: FDA-Public Use
  Company Number: US-PFIZER INC-2009193830

PATIENT
  Sex: Female
  Weight: 79.4 kg

DRUGS (2)
  1. TOVIAZ [Suspect]
     Indication: INCONTINENCE
     Dosage: 4 MG, UNK
     Dates: start: 20090401
  2. FUROSEMIDE [Concomitant]
     Indication: WHEEZING

REACTIONS (1)
  - DRY MOUTH [None]
